FAERS Safety Report 7903764-5 (Version None)
Quarter: 2011Q4

REPORT INFORMATION
  Report Type: 
  Country: None (occurrence: None)
  Receive Date: 20111109
  Receipt Date: 20111103
  Transmission Date: 20120403
  Serious: Yes (Death, Life-Threatening, Hospitalization)
  Sender: FDA-Public Use
  Company Number: US-SANOFI-AVENTIS-2011SA072423

PATIENT
  Age: 89 Year
  Sex: Female
  Weight: 58 kg

DRUGS (2)
  1. PLAVIX [Suspect]
     Indication: ATRIAL FIBRILLATION
     Route: 048
  2. ASPIRIN [Concomitant]

REACTIONS (6)
  - DYSPNOEA EXERTIONAL [None]
  - DEATH [None]
  - CARDIAC AMYLOIDOSIS [None]
  - PLEURAL EFFUSION [None]
  - RESPIRATORY DISTRESS [None]
  - ACIDOSIS [None]
